FAERS Safety Report 17389165 (Version 1)
Quarter: 2020Q1

REPORT INFORMATION
  Report Type: Spontaneous
  Country: US (occurrence: US)
  Receive Date: 20200207
  Receipt Date: 20200207
  Transmission Date: 20200409
  Serious: No
  Sender: FDA-Public Use
  Company Number: US-HORIZON-DUE-0043-2020

PATIENT
  Age: 57 Year
  Sex: Male

DRUGS (2)
  1. DUEXIS [Suspect]
     Active Substance: FAMOTIDINE\IBUPROFEN
     Indication: INJURY
     Dosage: 3 TIMES DAILY
     Dates: start: 202001
  2. PRAVASTATIN. [Concomitant]
     Active Substance: PRAVASTATIN

REACTIONS (5)
  - Headache [Recovered/Resolved]
  - Visual impairment [Unknown]
  - Feeling abnormal [Unknown]
  - Off label use [Unknown]
  - Blood pressure increased [Unknown]

NARRATIVE: CASE EVENT DATE: 202001
